FAERS Safety Report 21514450 (Version 3)
Quarter: 2022Q4

REPORT INFORMATION
  Report Type: Report from Study
  Country: CA (occurrence: CA)
  Receive Date: 20221027
  Receipt Date: 20221207
  Transmission Date: 20230113
  Serious: Yes (Hospitalization)
  Sender: FDA-Public Use
  Company Number: CA-HLS-202108187

PATIENT
  Age: 32 Year
  Sex: Female

DRUGS (1)
  1. CLOZARIL [Suspect]
     Active Substance: CLOZAPINE
     Indication: Product used for unknown indication
     Route: 048
     Dates: start: 20130222

REACTIONS (11)
  - Blood pressure increased [Unknown]
  - Hypertension [Recovered/Resolved]
  - Seizure [Unknown]
  - Dizziness [Recovered/Resolved]
  - Somnolence [Recovered/Resolved]
  - Headache [Recovered/Resolved]
  - Lymphocyte count decreased [Unknown]
  - Mean cell haemoglobin increased [Unknown]
  - Monocyte count increased [Unknown]
  - Sedation [Recovered/Resolved]
  - Weight decreased [Recovered/Resolved]

NARRATIVE: CASE EVENT DATE: 20210709
